FAERS Safety Report 6249534-8 (Version None)
Quarter: 2009Q2

REPORT INFORMATION
  Report Type: 
  Country: None (occurrence: None)
  Receive Date: 20090625
  Receipt Date: 20090625
  Transmission Date: 20091009
  Serious: No
  Sender: FDA-Public Use
  Company Number: None

PATIENT
  Age: 48 Year
  Sex: Female
  Weight: 65.7716 kg

DRUGS (1)
  1. ZICAM NA MATRIXX [Suspect]
     Indication: NASOPHARYNGITIS
     Dosage: VAG
     Route: 067

REACTIONS (7)
  - AGEUSIA [None]
  - ANOSMIA [None]
  - APPLICATION SITE BURN [None]
  - PAROSMIA [None]
  - PRODUCT LABEL ISSUE [None]
  - WEIGHT DECREASED [None]
  - WRONG TECHNIQUE IN DRUG USAGE PROCESS [None]
